FAERS Safety Report 24106778 (Version 1)
Quarter: 2024Q3

REPORT INFORMATION
  Report Type: Spontaneous
  Country: PL (occurrence: PL)
  Receive Date: 20240717
  Receipt Date: 20240717
  Transmission Date: 20241017
  Serious: Yes (Hospitalization)
  Sender: TEVA
  Company Number: None

PATIENT
  Age: 36 Year
  Sex: Male
  Weight: 64 kg

DRUGS (6)
  1. FENTANYL [Suspect]
     Active Substance: FENTANYL\FENTANYL CITRATE
     Indication: Pancreatic carcinoma metastatic
     Dosage: 100 MCH/H (TRANSDERMAL DRUG DELIVERY SYSTEM),
     Route: 065
     Dates: start: 202404, end: 20240530
  2. ACETAMINOPHEN [Suspect]
     Active Substance: ACETAMINOPHEN
     Indication: Pancreatic carcinoma metastatic
     Route: 048
     Dates: start: 202404, end: 20240530
  3. SERTRALINE [Suspect]
     Active Substance: SERTRALINE HYDROCHLORIDE
     Indication: Pancreatic carcinoma metastatic
     Route: 048
     Dates: start: 202404, end: 20240530
  4. METAMIZOLE MAGNESIUM [Concomitant]
     Active Substance: METAMIZOLE MAGNESIUM
     Indication: Product used for unknown indication
     Route: 065
  5. Ketonal [Concomitant]
     Indication: Product used for unknown indication
     Route: 065
  6. BUTYLSCOPOLAMINE BROMIDE [Suspect]
     Active Substance: BUTYLSCOPOLAMINE BROMIDE
     Indication: Pancreatic carcinoma metastatic
     Route: 048
     Dates: start: 202404, end: 20240530

REACTIONS (3)
  - Hyperaesthesia [Recovering/Resolving]
  - Pain [Recovering/Resolving]
  - Drug ineffective [Unknown]

NARRATIVE: CASE EVENT DATE: 20240530
